FAERS Safety Report 9638189 (Version 1)
Quarter: 2013Q4

REPORT INFORMATION
  Report Type: Spontaneous
  Country: US (occurrence: None)
  Receive Date: 20131021
  Receipt Date: 20131021
  Transmission Date: 20140711
  Serious: No
  Sender: FDA-Public Use
  Company Number: None

PATIENT
  Age: 92 Year
  Sex: Female
  Weight: 68.04 kg

DRUGS (6)
  1. EYLEA [Suspect]
     Indication: MACULAR DEGENERATION
     Dosage: 2 MG/ 0.05 ML, PRN/ AS NEEDED, OPHTHALMIC
     Dates: start: 20130904, end: 20130904
  2. LEVOTHYROXINE [Concomitant]
  3. ASPIRIN [Concomitant]
  4. VITAMIN D-3 [Concomitant]
  5. CALCIUM [Concomitant]
  6. FLAX OIL [Concomitant]

REACTIONS (1)
  - Anterior chamber inflammation [None]
